FAERS Safety Report 5247979-6 (Version None)
Quarter: 2007Q1

REPORT INFORMATION
  Report Type: 
  Country: None (occurrence: None)
  Receive Date: 20070226
  Receipt Date: 20070226
  Transmission Date: 20070707
  Serious: No
  Sender: FDA-Public Use
  Company Number: None

PATIENT
  Sex: Female
  Weight: 95.2554 kg

DRUGS (1)
  1. CITALOPRAM HYDROBROMIDE [Suspect]
     Indication: DEPRESSION
     Dosage: 30 MG DAILY PO
     Route: 048
     Dates: start: 19970401, end: 20070129

REACTIONS (1)
  - PHARMACEUTICAL PRODUCT COMPLAINT [None]
